FAERS Safety Report 24084427 (Version 4)
Quarter: 2025Q1

REPORT INFORMATION
  Report Type: Spontaneous
  Country: US (occurrence: US)
  Receive Date: 20240712
  Receipt Date: 20250130
  Transmission Date: 20250408
  Serious: Yes (Other)
  Sender: CSL BEHRING
  Company Number: US-BEH-2024175356

PATIENT
  Sex: Female

DRUGS (32)
  1. PRIVIGEN [Suspect]
     Active Substance: HUMAN IMMUNOGLOBULIN G
     Indication: Asthma
     Route: 042
  2. PRIVIGEN [Suspect]
     Active Substance: HUMAN IMMUNOGLOBULIN G
     Indication: Off label use
     Route: 042
  3. ALLOPURINOL [Concomitant]
     Active Substance: ALLOPURINOL
  4. METHOTREXATE [Concomitant]
     Active Substance: METHOTREXATE
  5. SULFASALAZINE [Concomitant]
     Active Substance: SULFASALAZINE
  6. NAPROXEN [Concomitant]
     Active Substance: NAPROXEN
  7. ALBUTEROL [Concomitant]
     Active Substance: ALBUTEROL
  8. AZITHROMYCIN [Concomitant]
     Active Substance: AZITHROMYCIN
  9. CLONAZEPAM [Concomitant]
     Active Substance: CLONAZEPAM
  10. ELIQUIS [Concomitant]
     Active Substance: APIXABAN
  11. FISH OIL [Concomitant]
     Active Substance: FISH OIL
  12. HYDROCHLOROTHIAZIDE [Concomitant]
     Active Substance: HYDROCHLOROTHIAZIDE
  13. HYDROCODONE [Concomitant]
     Active Substance: HYDROCODONE
  14. HYDROCORTISONE [Concomitant]
     Active Substance: HYDROCORTISONE
  15. LEVOTHYROXINE [Concomitant]
     Active Substance: LEVOTHYROXINE
  16. MAGNESIUM [Concomitant]
     Active Substance: MAGNESIUM
  17. MECLIZINE [Concomitant]
     Active Substance: MECLIZINE HYDROCHLORIDE
  18. METFORMIN [Concomitant]
     Active Substance: METFORMIN HYDROCHLORIDE
  19. METOPROLOL [Concomitant]
     Active Substance: METOPROLOL
  20. OMEPRAZOLE [Concomitant]
     Active Substance: OMEPRAZOLE
  21. POTASSIUM [Concomitant]
     Active Substance: POTASSIUM
  22. PROBIOTICS NOS [Concomitant]
     Active Substance: PROBIOTICS NOS
  23. PSYLLIUM [Concomitant]
     Active Substance: PLANTAGO SEED
  24. PULMICORT TURBUHALER [Concomitant]
     Active Substance: BUDESONIDE
  25. SINGULAIR [Concomitant]
     Active Substance: MONTELUKAST SODIUM
  26. SYMBICORT [Concomitant]
     Active Substance: BUDESONIDE\FORMOTEROL FUMARATE DIHYDRATE
  27. VALACYCLOVIR [Concomitant]
     Active Substance: VALACYCLOVIR HYDROCHLORIDE
  28. VALSARTAN [Concomitant]
     Active Substance: VALSARTAN
  29. VERAPAMIL [Concomitant]
     Active Substance: VERAPAMIL HYDROCHLORIDE
  30. ZYRTEC [Concomitant]
     Active Substance: CETIRIZINE HYDROCHLORIDE
  31. BACTRIM [Concomitant]
     Active Substance: SULFAMETHOXAZOLE\TRIMETHOPRIM
  32. MESALAMINE [Concomitant]
     Active Substance: MESALAMINE

REACTIONS (8)
  - COVID-19 [Unknown]
  - Colitis [Unknown]
  - Urinary tract infection [Recovered/Resolved]
  - Illness [Unknown]
  - Feeling jittery [Recovered/Resolved]
  - Wound [Recovered/Resolved]
  - Feeling jittery [Unknown]
  - Off label use [Unknown]
